FAERS Safety Report 9775432 (Version 2)
Quarter: 2014Q1

REPORT INFORMATION
  Report Type: Spontaneous
  Country: FR (occurrence: None)
  Receive Date: 20131218
  Receipt Date: 20140314
  Transmission Date: 20141002
  Serious: Yes (Life-Threatening, Hospitalization)
  Sender: FDA-Public Use
  Company Number: FK201305364

PATIENT
  Age: 66 Year
  Sex: Female

DRUGS (9)
  1. PACLITAXEL [Suspect]
     Indication: OVARIAN CANCER
     Dosage: INTRAVENOUS (NOT OTHERWISE SPECIFIED)?
     Route: 042
     Dates: start: 20131108
  2. CARBOPLATINE [Suspect]
     Indication: OVARIAN CANCER
     Dosage: INTRAVENOUS (NOT OTHERWISE SPECIFIED)?
     Route: 042
     Dates: start: 20131108
  3. PRIMPERAN (METOCLOPRAMIDE HYDROCHLORIDE) [Concomitant]
  4. ATARAX (HYDROXYZINE) [Concomitant]
  5. LEVOTHYROX (LEVOTHYROXINE SODIUM)? [Concomitant]
  6. ACUPAN (NEFOPAM HYDROCHLORIDE) [Concomitant]
  7. DOLIPRANE (PARACETAMOL) [Concomitant]
  8. TOPALGIC LP (TRAMADOL HYDROCHLORIDE) [Concomitant]
  9. TOPALGIC (TRAMADOL HYDROCHLORIDE) [Concomitant]

REACTIONS (4)
  - Febrile bone marrow aplasia [None]
  - Anaemia [None]
  - Thrombocytopenia [None]
  - Neutropenia [None]
